FAERS Safety Report 4352678-9 (Version None)
Quarter: 2004Q2

REPORT INFORMATION
  Report Type: 
  Country: None (occurrence: None)
  Receive Date: 20040429
  Receipt Date: 20040423
  Transmission Date: 20050107
  Serious: Yes (Hospitalization)
  Sender: FDA-Public Use
  Company Number: 2004210428US

PATIENT
  Sex: Female

DRUGS (2)
  1. DEPO-MEDROL [Suspect]
  2. BOTOX (BOTULINUM TOXIN TYPE A) [Suspect]

REACTIONS (2)
  - PSYCHOTIC DISORDER [None]
  - SUICIDE ATTEMPT [None]
